FAERS Safety Report 7295628-8 (Version None)
Quarter: 2011Q1

REPORT INFORMATION
  Report Type: 
  Country: None (occurrence: None)
  Receive Date: 20110216
  Receipt Date: 20101229
  Transmission Date: 20110831
  Serious: No
  Sender: FDA-Public Use
  Company Number: US-ABBOTT-10P-163-0694303-00

PATIENT
  Sex: Male
  Weight: 111.23 kg

DRUGS (3)
  1. APIDRA [Concomitant]
     Indication: PRODUCT USED FOR UNKNOWN INDICATION
     Route: 058
  2. SIMCOR [Suspect]
     Indication: DYSLIPIDAEMIA
     Dosage: 500/20MG IN THE EVENING
     Route: 048
  3. HUMALOG [Concomitant]
     Indication: PRODUCT USED FOR UNKNOWN INDICATION
     Dosage: 75/25
     Route: 058

REACTIONS (2)
  - FLUSHING [None]
  - PARAESTHESIA [None]
